FAERS Safety Report 23306256 (Version 1)
Quarter: 2023Q4

REPORT INFORMATION
  Report Type: Spontaneous
  Country: KR (occurrence: KR)
  Receive Date: 20231218
  Receipt Date: 20231218
  Transmission Date: 20240110
  Serious: Yes (Other)
  Sender: FDA-Public Use
  Company Number: KR-UCBSA-2023059108

PATIENT
  Sex: Male
  Weight: 60 kg

DRUGS (2)
  1. KEPPRA [Suspect]
     Active Substance: LEVETIRACETAM
     Indication: Evidence based treatment
     Dosage: 1 DOSAGE FORM, 2X/DAY (BID)/KEPPRA TAB 500MG
     Dates: start: 20230204, end: 20230310
  2. PYRAZINAMIDE [Concomitant]
     Active Substance: PYRAZINAMIDE
     Indication: Evidence based treatment
     Dosage: 3 DOSAGE FORM, ONCE DAILY (QD)
     Dates: start: 20230223, end: 20230308

REACTIONS (1)
  - Dermatitis bullous [Recovered/Resolved]

NARRATIVE: CASE EVENT DATE: 20230308
